FAERS Safety Report 8203864-9 (Version None)
Quarter: 2012Q1

REPORT INFORMATION
  Report Type: 
  Country: None (occurrence: None)
  Receive Date: 20120313
  Receipt Date: 20120305
  Transmission Date: 20120608
  Serious: Yes (Hospitalization)
  Sender: FDA-Public Use
  Company Number: JP-VERTEX PHARMACEUTICALS INC.-AE-2012-002358

PATIENT
  Age: 66 Year
  Sex: Male

DRUGS (11)
  1. PEGINTERFERON ALFA-2B [Concomitant]
     Indication: HEPATITIS C
     Route: 051
     Dates: start: 20120111
  2. OMEPRAZOLE [Concomitant]
  3. MIGLITOL [Concomitant]
  4. RIBAVIRIN [Concomitant]
     Indication: HEPATITIS C
     Dates: start: 20120111, end: 20120201
  5. RIBAVIRIN [Concomitant]
     Route: 048
     Dates: start: 20120201, end: 20120215
  6. TELAVIC (TELAPREVIR) [Suspect]
     Indication: HEPATITIS C
     Route: 048
     Dates: start: 20120111
  7. MAGMITT [Concomitant]
  8. JUZEN-TAIHO-TO [Concomitant]
  9. TELAVIC (TELAPREVIR) [Suspect]
     Route: 048
     Dates: start: 20120215
  10. RIBAVIRIN [Concomitant]
     Route: 048
     Dates: start: 20120215
  11. LASIX [Concomitant]

REACTIONS (7)
  - PLATELET COUNT DECREASED [None]
  - PROSTATITIS [None]
  - DECREASED APPETITE [None]
  - HYPERURICAEMIA [None]
  - URINARY TRACT INFECTION [None]
  - ANAEMIA [None]
  - XERODERMA [None]
